FAERS Safety Report 14354673 (Version 1)
Quarter: 2018Q1

REPORT INFORMATION
  Report Type: Spontaneous
  Country: FR (occurrence: FR)
  Receive Date: 20180105
  Receipt Date: 20180105
  Transmission Date: 20180509
  Serious: Yes (Other)
  Sender: FDA-Public Use
  Company Number: FR-MERCK KGAA-2039426

PATIENT
  Age: 69 Year
  Sex: Female
  Weight: 49 kg

DRUGS (1)
  1. NOVOTHYROX [Suspect]
     Active Substance: LEVOTHYROXINE SODIUM
     Indication: PRODUCT USED FOR UNKNOWN INDICATION
     Route: 048
     Dates: start: 20170501, end: 20171001

REACTIONS (13)
  - Irritability [Unknown]
  - Blood thyroid stimulating hormone [Unknown]
  - Hot flush [Unknown]
  - Muscle spasms [Unknown]
  - Arthralgia [Unknown]
  - Paraesthesia [Unknown]
  - Myalgia [Unknown]
  - Vertigo [Unknown]
  - Palpitations [Unknown]
  - Fatigue [Unknown]
  - Alopecia [Unknown]
  - Insomnia [Unknown]
  - Dry mouth [Unknown]

NARRATIVE: CASE EVENT DATE: 201706
